FAERS Safety Report 9676444 (Version 1)
Quarter: 2013Q4

REPORT INFORMATION
  Report Type: Spontaneous
  Country: CA (occurrence: CA)
  Receive Date: 20131107
  Receipt Date: 20131107
  Transmission Date: 20140711
  Serious: Yes (Other)
  Sender: FDA-Public Use
  Company Number: CHPA2013CA016701

PATIENT
  Age: 58 Year
  Sex: Female

DRUGS (7)
  1. BUCKLEY^S COMPLETE LIQUID GELS PLUS MUCOUS RELIEF [Suspect]
     Indication: SECRETION DISCHARGE
     Dosage: 1 DF, ONCE TO TWICE A DAY
     Route: 048
     Dates: start: 20131102, end: 20131103
  2. BUCKLEY^S COMPLETE LIQUID GELS PLUS MUCOUS RELIEF [Suspect]
     Indication: OROPHARYNGEAL PAIN
  3. BUCKLEY^S COMPLETE LIQUID GELS PLUS MUCOUS RELIEF [Suspect]
     Indication: COUGH
  4. BUCKLEY^S COMPLETE LIQUID GELS PLUS MUCOUS RELIEF [Suspect]
     Indication: INCREASED UPPER AIRWAY SECRETION
  5. BUCKLEY^S COMPLETE LIQUID GELS PLUS MUCOUS RELIEF [Suspect]
     Indication: OFF LABEL USE
  6. BUCKLEY^S UNKNOWN [Suspect]
     Indication: BRONCHITIS
     Dosage: UNK, UNK
     Route: 065
  7. BUCKLEY^S UNKNOWN [Suspect]
     Indication: OFF LABEL USE

REACTIONS (11)
  - Bronchitis [Recovered/Resolved]
  - Muscle spasms [Not Recovered/Not Resolved]
  - Chest discomfort [Unknown]
  - Feeling abnormal [Not Recovered/Not Resolved]
  - Secretion discharge [Unknown]
  - Cough [Not Recovered/Not Resolved]
  - Increased upper airway secretion [Unknown]
  - Oropharyngeal pain [Unknown]
  - Paraesthesia [Not Recovered/Not Resolved]
  - Dysphagia [Unknown]
  - Underdose [Unknown]
